FAERS Safety Report 4309062-3 (Version None)
Quarter: 2004Q1

REPORT INFORMATION
  Report Type: 
  Country: None (occurrence: None)
  Receive Date: 20040301
  Receipt Date: 20040216
  Transmission Date: 20041129
  Serious: Yes (Life-Threatening, Hospitalization)
  Sender: FDA-Public Use
  Company Number: 2004-BP-01112AU

PATIENT
  Age: 87 Year
  Sex: Female

DRUGS (2)
  1. MOBIC [Suspect]
     Dosage: ORAL
     Route: 048
  2. ASPIRIN [Concomitant]

REACTIONS (2)
  - GASTRODUODENAL ULCER [None]
  - HAEMATEMESIS [None]
